FAERS Safety Report 8850817 (Version 1)
Quarter: 2012Q4

REPORT INFORMATION
  Report Type: 
  Country: TR (occurrence: TR)
  Receive Date: 20121019
  Receipt Date: 20121019
  Transmission Date: 20130627
  Serious: Yes (Other)
  Sender: FDA-Public Use
  Company Number: TR-JNJFOC-20121007579

PATIENT
  Age: 83 Year
  Sex: Male

DRUGS (3)
  1. HALOPERIDOL [Suspect]
     Indication: DISORIENTATION
     Route: 065
  2. HALOPERIDOL [Suspect]
     Indication: DELIRIUM
     Route: 065
  3. HALOPERIDOL [Suspect]
     Indication: AGITATION
     Route: 065

REACTIONS (1)
  - Myoclonus [Recovered/Resolved]
